FAERS Safety Report 5912414-9 (Version None)
Quarter: 2008Q4

REPORT INFORMATION
  Report Type: 
  Country: None (occurrence: None)
  Receive Date: 20081008
  Receipt Date: 20080930
  Transmission Date: 20090506
  Serious: Yes (Other)
  Sender: FDA-Public Use
  Company Number: US-WATSON-2008-05855

PATIENT
  Age: 39 Year
  Sex: Female

DRUGS (3)
  1. ETOPOSIDE (WATSON LABORATORIES) [Suspect]
     Indication: ACUTE MYELOID LEUKAEMIA
     Dosage: UNK
     Route: 065
     Dates: start: 20020101, end: 20020101
  2. CYTARABINE [Suspect]
     Indication: ACUTE MYELOID LEUKAEMIA
     Dosage: UNK
     Dates: start: 20020101, end: 20020101
  3. DAUNORUBICIN HCL [Suspect]
     Indication: ACUTE MYELOID LEUKAEMIA
     Dosage: UNK
     Route: 065
     Dates: start: 20020101, end: 20020101

REACTIONS (1)
  - GUILLAIN-BARRE SYNDROME [None]
